FAERS Safety Report 12646459 (Version 2)
Quarter: 2016Q3

REPORT INFORMATION
  Report Type: Report from Study
  Country: US (occurrence: US)
  Receive Date: 20160812
  Receipt Date: 20160920
  Transmission Date: 20161109
  Serious: No
  Sender: FDA-Public Use
  Company Number: US-009507513-1608USA005841

PATIENT
  Sex: Female

DRUGS (2)
  1. TYLENOL [Concomitant]
     Active Substance: ACETAMINOPHEN
     Dosage: UNK, QPM
  2. INTRON A [Suspect]
     Active Substance: INTERFERON ALFA-2B
     Indication: SKIN CANCER
     Dosage: 1.7 ML (17MU), EVERY MONDAY, WEDNESDAY AND FRIDAY FOR 48 WEEKS
     Route: 058
     Dates: start: 201602

REACTIONS (5)
  - Alopecia [Not Recovered/Not Resolved]
  - Rash [Not Recovered/Not Resolved]
  - Headache [Not Recovered/Not Resolved]
  - Product use issue [Unknown]
  - Productive cough [Not Recovered/Not Resolved]

NARRATIVE: CASE EVENT DATE: 2016
